FAERS Safety Report 10361135 (Version 1)
Quarter: 2014Q3

REPORT INFORMATION
  Report Type: Spontaneous
  Country: FR (occurrence: FR)
  Receive Date: 20140804
  Receipt Date: 20140804
  Transmission Date: 20150326
  Serious: Yes (Other)
  Sender: FDA-Public Use
  Company Number: FR-MYLAN-#E2B0000047274

PATIENT

DRUGS (2)
  1. BACLOFEN. [Suspect]
     Active Substance: BACLOFEN
     Indication: ALCOHOLISM
     Dosage: UNK
     Route: 065
  2. BACLOFEN. [Suspect]
     Active Substance: BACLOFEN
     Indication: OFF LABEL USE

REACTIONS (6)
  - Flight of ideas [None]
  - Mania [Recovered/Resolved]
  - Abnormal behaviour [None]
  - Insomnia [None]
  - Self esteem inflated [None]
  - Logorrhoea [None]
